FAERS Safety Report 8941792 (Version 1)
Quarter: 2012Q4

REPORT INFORMATION
  Report Type: 
  Country: GB (occurrence: GB)
  Receive Date: 20121203
  Receipt Date: 20121203
  Transmission Date: 20130627
  Serious: Yes (Hospitalization)
  Sender: FDA-Public Use
  Company Number: GB-ROXANE LABORATORIES, INC.-2012-RO-02459RO

PATIENT
  Age: 74 Year
  Sex: Female

DRUGS (3)
  1. METHOTREXATE [Suspect]
     Indication: RHEUMATOID ARTHRITIS
  2. ASPIRIN [Suspect]
     Indication: MYOCARDIAL INFARCTION
     Dosage: 75 mg
  3. PREDNISOLONE [Suspect]
     Indication: RHEUMATOID ARTHRITIS
     Dosage: 5 mg

REACTIONS (6)
  - Haemobilia [Recovered/Resolved]
  - Gallbladder perforation [Recovered/Resolved]
  - Cholecystitis acute [Unknown]
  - Myocardial infarction [Recovered/Resolved]
  - Hypovolaemic shock [Recovered/Resolved]
  - Respiratory alkalosis [Recovered/Resolved]
